FAERS Safety Report 7740580-1 (Version None)
Quarter: 2011Q3

REPORT INFORMATION
  Report Type: 
  Country: None (occurrence: None)
  Receive Date: 20110909
  Receipt Date: 20110907
  Transmission Date: 20111222
  Serious: Yes (Hospitalization, Other)
  Sender: FDA-Public Use
  Company Number: US-PFIZER INC-2006081713

PATIENT
  Sex: Female
  Weight: 62.132 kg

DRUGS (4)
  1. SUNITINIB MALATE [Suspect]
     Indication: GASTROINTESTINAL STROMAL TUMOUR
     Dosage: 50 MG, 1X/DAY
     Route: 048
     Dates: start: 20050818, end: 20060629
  2. AMBIEN [Concomitant]
     Route: 048
     Dates: start: 20050117
  3. LASIX [Concomitant]
     Route: 048
     Dates: start: 20050117
  4. PENICILLIN G [Concomitant]

REACTIONS (7)
  - BRADYCARDIA [None]
  - VENTRICULAR TACHYCARDIA [None]
  - ELECTROCARDIOGRAM QT PROLONGED [None]
  - HEART RATE IRREGULAR [None]
  - HYPERGLYCAEMIA [None]
  - SYNCOPE [None]
  - HYPOKALAEMIA [None]
